FAERS Safety Report 19827190 (Version 1)
Quarter: 2021Q3

REPORT INFORMATION
  Report Type: Spontaneous
  Country: US (occurrence: US)
  Receive Date: 20210914
  Receipt Date: 20210914
  Transmission Date: 20211014
  Serious: No
  Sender: FDA-Public Use
  Company Number: None

PATIENT
  Age: 31 Year
  Sex: Female
  Weight: 99 kg

DRUGS (1)
  1. ETONOGESTREL AND ETHINYL ESTRADIOL VAGINAL RING [Suspect]
     Active Substance: ETHINYL ESTRADIOL\ETONOGESTREL
     Indication: CONTRACEPTION
     Route: 067
     Dates: start: 20210808, end: 20210829

REACTIONS (5)
  - Intermenstrual bleeding [None]
  - Product substitution issue [None]
  - Ovarian cyst [None]
  - Dysmenorrhoea [None]
  - Acne cystic [None]

NARRATIVE: CASE EVENT DATE: 20210810
